FAERS Safety Report 14827074 (Version 1)
Quarter: 2018Q2

REPORT INFORMATION
  Report Type: Spontaneous
  Country: MX (occurrence: MX)
  Receive Date: 20180430
  Receipt Date: 20180430
  Transmission Date: 20180711
  Serious: Yes (Other)
  Sender: FDA-Public Use
  Company Number: MX-BIOGEN-2018BI00563537

PATIENT
  Age: 41 Year
  Sex: Female

DRUGS (1)
  1. AVONEX [Suspect]
     Active Substance: INTERFERON BETA-1A
     Indication: MULTIPLE SCLEROSIS
     Route: 065

REACTIONS (2)
  - Tumefactive multiple sclerosis [Not Recovered/Not Resolved]
  - Progressive multiple sclerosis [Unknown]
